FAERS Safety Report 10310307 (Version 3)
Quarter: 2014Q3

REPORT INFORMATION
  Report Type: Spontaneous
  Country: JP (occurrence: None)
  Receive Date: 20140715
  Receipt Date: 20140812
  Transmission Date: 20150326
  Serious: Yes (Life-Threatening)
  Sender: FDA-Public Use
  Company Number: AE-SPE-2014-022

PATIENT
  Age: 4 Year
  Sex: Female

DRUGS (10)
  1. L-CARBOCISTEINE [Concomitant]
     Active Substance: CARBOCYSTEINE
  2. ANTIBIOTICS-RESISTANT LACTIC ACID BACTERIA [Concomitant]
  3. MEIACT MS FINE GRANULES (CEFDITOREN PIVOXIL) [Suspect]
     Active Substance: CEFDITOREN PIVOXIL
     Indication: NASOPHARYNGITIS
     Dosage: 46.6 MG TID, P.O., 50 DAYS
     Route: 048
     Dates: start: 20140115
  4. PRANLUKAST HYDRATE [Concomitant]
  5. KETOTIFEN FUMARATE. [Concomitant]
     Active Substance: KETOTIFEN FUMARATE
  6. SALICYLARNIDE/ACETAMINOPHEN/ANHYDROUS CAFFEINE/PROMETHAZINE METHYLENEDISALICYLATE [Concomitant]
  7. FLUTICASONE PROPIONATE. [Concomitant]
     Active Substance: FLUTICASONE PROPIONATE
  8. FLOMOX [Suspect]
     Active Substance: CEFCAPENE PIVOXIL HYDROCHLORIDE HYDRATE
     Dosage: P.O., 5 DAYS?
     Route: 048
  9. TIPEPIDINE HIBENZATE [Concomitant]
     Active Substance: TIPEPIDINE HIBENZATE
  10. PROCATEROL HYDROCHLORIDE HYDRATE [Concomitant]

REACTIONS (5)
  - Convulsion [None]
  - Hypocarnitinaemia [None]
  - Hypoglycaemia [None]
  - Hyperammonaemia [None]
  - Depressed level of consciousness [None]

NARRATIVE: CASE EVENT DATE: 20140603
